FAERS Safety Report 5801481-9 (Version None)
Quarter: 2008Q3

REPORT INFORMATION
  Report Type: 
  Country: None (occurrence: None)
  Receive Date: 20080707
  Receipt Date: 20080630
  Transmission Date: 20090109
  Serious: Yes (Hospitalization)
  Sender: FDA-Public Use
  Company Number: GB-ROCHE-562512

PATIENT
  Sex: Male
  Weight: 112.4 kg

DRUGS (10)
  1. XENICAL [Suspect]
     Indication: OBESITY
     Route: 048
     Dates: start: 20080130, end: 20080314
  2. ASPIRIN [Concomitant]
     Indication: CARDIOVASCULAR EVENT PROPHYLAXIS
     Dosage: DAILY
     Route: 048
     Dates: start: 20030101
  3. BISOPROLOL FUMARATE [Concomitant]
     Indication: HYPERTENSION
     Dosage: TAKING LONG TERM
     Route: 048
     Dates: start: 20030101
  4. SIMVASTATIN [Concomitant]
     Dosage: TAKING LONG TERM
     Route: 048
     Dates: start: 20030101
  5. ACETAMINOPHEN [Concomitant]
     Dosage: TAKING LONG TERM
     Route: 048
     Dates: start: 20030101
  6. GLUCOPHAGE [Concomitant]
     Dosage: TAKING LONG TERM
     Route: 048
     Dates: start: 20030101
  7. LANTUS [Concomitant]
     Route: 058
     Dates: start: 20030101
  8. HUMALOG [Concomitant]
     Dosage: 10-20 UNITS PER MEAL, TAKING LONG TERM VARIABLE DOSE
     Route: 058
     Dates: start: 20030101
  9. DICLOFENAC SODIUM [Concomitant]
     Indication: OSTEOARTHRITIS
     Dosage: PRESCRIBED FOR PAIN
     Route: 048
     Dates: start: 20030101
  10. RAMIPRIL [Concomitant]
     Indication: HYPERTENSION
     Dosage: TAKING LONG TERM
     Route: 048
     Dates: start: 20030101

REACTIONS (8)
  - ARTHRITIS BACTERIAL [None]
  - CELLULITIS [None]
  - DEVICE RELATED INFECTION [None]
  - NAIL OPERATION [None]
  - PAIN [None]
  - POSTOPERATIVE WOUND INFECTION [None]
  - RESPIRATORY TRACT INFECTION [None]
  - WEIGHT DECREASED [None]
